FAERS Safety Report 17036910 (Version 4)
Quarter: 2020Q1

REPORT INFORMATION
  Report Type: Report from Study
  Country: CA (occurrence: CA)
  Receive Date: 20191115
  Receipt Date: 20200131
  Transmission Date: 20200409
  Serious: Yes (Other)
  Sender: FDA-Public Use
  Company Number: CA-JNJFOC-20191104674

PATIENT
  Age: 27 Year
  Sex: Female

DRUGS (1)
  1. STELARA [Suspect]
     Active Substance: USTEKINUMAB
     Indication: CROHN^S DISEASE
     Route: 058
     Dates: start: 20180508

REACTIONS (4)
  - Nasopharyngitis [Unknown]
  - Sinusitis [Unknown]
  - Lower respiratory tract infection [Not Recovered/Not Resolved]
  - Endodontic procedure [Recovering/Resolving]

NARRATIVE: CASE EVENT DATE: 20191101
